FAERS Safety Report 7905744-2 (Version None)
Quarter: 2011Q4

REPORT INFORMATION
  Report Type: 
  Country: None (occurrence: None)
  Receive Date: 20111108
  Receipt Date: 20111024
  Transmission Date: 20120403
  Serious: Yes (Hospitalization, Other)
  Sender: FDA-Public Use
  Company Number: 2011MA015691

PATIENT
  Age: 76 Year
  Sex: Male

DRUGS (5)
  1. GABAPENTIN [Suspect]
     Indication: DIABETIC NEUROPATHY
     Dosage: 1200 MG;Q8HR;
  2. FAMOTIDINE [Suspect]
  3. OXYCODONE/ACETAMINOPHEN [Concomitant]
  4. ZOLPIDEM [Concomitant]
  5. GLYBURIDE [Concomitant]

REACTIONS (10)
  - AGITATION [None]
  - RESTLESS LEGS SYNDROME [None]
  - AKATHISIA [None]
  - EMOTIONAL DISTRESS [None]
  - BLOOD GLUCOSE INCREASED [None]
  - LETHARGY [None]
  - DRUG WITHDRAWAL SYNDROME [None]
  - PAIN IN EXTREMITY [None]
  - ANXIETY [None]
  - CONFUSIONAL STATE [None]
